FAERS Safety Report 22857067 (Version 3)
Quarter: 2024Q1

REPORT INFORMATION
  Report Type: Spontaneous
  Country: US (occurrence: US)
  Receive Date: 20230823
  Receipt Date: 20240219
  Transmission Date: 20240409
  Serious: No
  Sender: FDA-Public Use
  Company Number: US-Stemline Therapeutics, Inc.-2023ST002224

PATIENT
  Age: 78 Year
  Sex: Female

DRUGS (3)
  1. ORSERDU [Suspect]
     Active Substance: ELACESTRANT
     Indication: Product used for unknown indication
     Dosage: 345 MG ONCE A DAY
     Route: 048
     Dates: start: 20230704
  2. ORSERDU [Suspect]
     Active Substance: ELACESTRANT
     Dosage: 345 MG ONCE A DAY
     Route: 048
     Dates: start: 20230704
  3. ORSERDU [Suspect]
     Active Substance: ELACESTRANT
     Dosage: 258 MG, ORAL, ONCE A DAY
     Route: 048
     Dates: start: 20230704

REACTIONS (5)
  - Rhinorrhoea [Not Recovered/Not Resolved]
  - Illness [Unknown]
  - Drug intolerance [Unknown]
  - Drug ineffective [Not Recovered/Not Resolved]
  - Neoplasm malignant [Not Recovered/Not Resolved]
